FAERS Safety Report 13125550 (Version 3)
Quarter: 2018Q1

REPORT INFORMATION
  Report Type: Report from Study
  Country: FR (occurrence: FR)
  Receive Date: 20170118
  Receipt Date: 20180330
  Transmission Date: 20180508
  Serious: Yes (Other)
  Sender: FDA-Public Use
  Company Number: FR-JNJFOC-20170111541

PATIENT
  Sex: Male
  Weight: 49 kg

DRUGS (5)
  1. LYRICA [Concomitant]
     Active Substance: PREGABALIN
     Indication: MUSCLE SPASMS
     Route: 048
     Dates: start: 20130418
  2. KARDEGIC [Concomitant]
     Active Substance: ASPIRIN DL-LYSINE
     Indication: ARTERIOSCLEROSIS
     Route: 048
  3. ISENTRESS [Suspect]
     Active Substance: RALTEGRAVIR POTASSIUM
     Indication: HIV INFECTION
     Route: 065
     Dates: start: 20150317
  4. PRAVASTATIN. [Concomitant]
     Active Substance: PRAVASTATIN
     Indication: HYPERCHOLESTEROLAEMIA
     Route: 048
  5. INTELENCE [Suspect]
     Active Substance: ETRAVIRINE
     Indication: HIV INFECTION
     Dosage: 200 UNSPECIFIED UNIT
     Route: 048
     Dates: start: 20150317

REACTIONS (1)
  - Tooth loss [Recovering/Resolving]

NARRATIVE: CASE EVENT DATE: 2016
